FAERS Safety Report 5094173-8 (Version None)
Quarter: 2006Q3

REPORT INFORMATION
  Report Type: 
  Country: None (occurrence: None)
  Receive Date: 20060830
  Receipt Date: 20060811
  Transmission Date: 20061208
  Serious: Yes (Other)
  Sender: FDA-Public Use
  Company Number: GB200607001722

PATIENT
  Age: 10 Year
  Sex: Male

DRUGS (3)
  1. STRATTERA [Suspect]
     Indication: ATTENTION DEFICIT/HYPERACTIVITY DISORDER
     Dosage: SEE IMAGE
     Route: 048
     Dates: start: 20060531, end: 20060704
  2. EQUASYM (METHYLPHENIDATE HYDROCHLORIDE) [Concomitant]
  3. RISPERIDONE [Concomitant]

REACTIONS (11)
  - APATHY [None]
  - CHILLS [None]
  - DIARRHOEA [None]
  - FEELING COLD [None]
  - HEADACHE [None]
  - INFLUENZA LIKE ILLNESS [None]
  - INSOMNIA [None]
  - PAIN IN EXTREMITY [None]
  - POLLAKIURIA [None]
  - RENAL FAILURE [None]
  - URINARY RETENTION [None]
